FAERS Safety Report 24651031 (Version 1)
Quarter: 2024Q4

REPORT INFORMATION
  Report Type: Spontaneous
  Country: IT (occurrence: IT)
  Receive Date: 20241122
  Receipt Date: 20241122
  Transmission Date: 20250115
  Serious: Yes (Other)
  Sender: CELLTRION
  Company Number: None

PATIENT

DRUGS (1)
  1. INFLIXIMAB [Suspect]
     Active Substance: INFLIXIMAB
     Indication: Crohn^s disease
     Dosage: 1 DF 1 CYCLE
     Route: 042
     Dates: start: 202402, end: 202404

REACTIONS (2)
  - Crohn^s disease [Not Recovered/Not Resolved]
  - Wrong dosage formulation [Unknown]

NARRATIVE: CASE EVENT DATE: 20240101
